FAERS Safety Report 6259838-0 (Version None)
Quarter: 2009Q3

REPORT INFORMATION
  Report Type: 
  Country: None (occurrence: None)
  Receive Date: 20090708
  Receipt Date: 20090615
  Transmission Date: 20100115
  Serious: No
  Sender: FDA-Public Use
  Company Number: US-BAYER-200924247NA

PATIENT
  Age: 52 Year
  Sex: Female
  Weight: 70 kg

DRUGS (11)
  1. MAGNEVIST [Suspect]
     Indication: NUCLEAR MAGNETIC RESONANCE IMAGING
     Dosage: TOTAL DAILY DOSE: 15 ML  UNIT DOSE: 15 ML
     Route: 042
     Dates: start: 20090609, end: 20090609
  2. ALPRAZOLAM [Concomitant]
  3. SEROQUEL [Concomitant]
  4. PROZAC [Concomitant]
  5. METHADONE [Concomitant]
  6. TIZANIDINE [Concomitant]
  7. AMBIEN [Concomitant]
  8. CATAPRES [Concomitant]
  9. CLONAZEPAM [Concomitant]
  10. LYRICA [Concomitant]
  11. OXYCODONE [Concomitant]

REACTIONS (1)
  - PRURITUS GENERALISED [None]
